FAERS Safety Report 5700618-X (Version None)
Quarter: 2008Q2

REPORT INFORMATION
  Report Type: 
  Country: None (occurrence: None)
  Receive Date: 20080410
  Receipt Date: 20080402
  Transmission Date: 20081010
  Serious: Yes (Other)
  Sender: FDA-Public Use
  Company Number: AU-AVENTIS-200813011GDDC

PATIENT
  Age: 58 Year
  Sex: Female

DRUGS (3)
  1. ARAVA [Suspect]
     Indication: RHEUMATOID ARTHRITIS
     Route: 048
     Dates: start: 20041207
  2. SALAZOPYRIN [Concomitant]
     Dosage: DOSE: UNK
  3. PREDNISOLONE [Concomitant]
     Dosage: DOSE: UNK

REACTIONS (3)
  - BLOOD IRON DECREASED [None]
  - PARALYSIS [None]
  - RHEUMATOID FACTOR INCREASED [None]
